FAERS Safety Report 9657230 (Version 1)
Quarter: 2013Q4

REPORT INFORMATION
  Report Type: Report from Study
  Country: GB (occurrence: GB)
  Receive Date: 20131030
  Receipt Date: 20131030
  Transmission Date: 20140711
  Serious: Yes (Hospitalization)
  Sender: FDA-Public Use
  Company Number: GB-GLAXOSMITHKLINE-B0928689A

PATIENT
  Age: 75 Year
  Sex: Male
  Weight: 78.3 kg

DRUGS (9)
  1. OFATUMUMAB [Suspect]
     Indication: CHRONIC LYMPHOCYTIC LEUKAEMIA
     Route: 042
     Dates: start: 20121025
  2. BENDAMUSTINE [Suspect]
     Indication: CHRONIC LYMPHOCYTIC LEUKAEMIA
     Route: 042
     Dates: start: 20121025
  3. ACICLOVIR [Concomitant]
  4. GRANULOCYTE COLONY-STIMULATING FACTOR NOS [Concomitant]
  5. ALLOPURINOL [Concomitant]
     Indication: CHRONIC LYMPHOCYTIC LEUKAEMIA
     Route: 048
     Dates: start: 20121024, end: 20121030
  6. PARACETAMOL [Concomitant]
     Route: 048
     Dates: start: 20121025, end: 20121025
  7. CHLORPHENIRAMINE [Concomitant]
     Route: 042
     Dates: start: 20121025, end: 20121025
  8. PREDNISOLONE [Concomitant]
     Route: 048
     Dates: start: 20121024, end: 20121025
  9. METOCLOPRAMIDE [Concomitant]
     Route: 048
     Dates: start: 20121025, end: 20121025

REACTIONS (4)
  - Hyperkalaemia [Recovered/Resolved]
  - Renal failure [Recovered/Resolved]
  - Hyperphosphataemia [Recovered/Resolved]
  - Hyperuricaemia [Recovered/Resolved]
